FAERS Safety Report 4676611-5 (Version None)
Quarter: 2005Q2

REPORT INFORMATION
  Report Type: 
  Country: None (occurrence: None)
  Receive Date: 20050526
  Receipt Date: 20050516
  Transmission Date: 20051028
  Serious: Yes (Other)
  Sender: FDA-Public Use
  Company Number: 2005076687

PATIENT
  Sex: Female
  Weight: 70.3075 kg

DRUGS (3)
  1. ALPRAZOLAM [Suspect]
     Indication: PANIC DISORDER
     Dosage: 1.5 MG (0.5 MG, 3 IN 1 D), ORAL
     Route: 048
  2. XANAX XR [Suspect]
     Indication: PANIC DISORDER
     Dosage: 1.5 MG (0.5 MG, 3 IN 1 D), ORAL
     Route: 048
     Dates: start: 20050401, end: 20050401
  3. PREMARIN (ESTROGENS COONJUGATED) [Concomitant]

REACTIONS (5)
  - BASEDOW'S DISEASE [None]
  - CONSTIPATION [None]
  - DRUG DEPENDENCE [None]
  - FLATULENCE [None]
  - MUSCLE SPASMS [None]
